FAERS Safety Report 4622196-9 (Version None)
Quarter: 2005Q1

REPORT INFORMATION
  Report Type: 
  Country: None (occurrence: None)
  Receive Date: 20050324
  Receipt Date: 20050324
  Transmission Date: 20050727
  Serious: No
  Sender: FDA-Public Use
  Company Number: None

PATIENT
  Sex: Female
  Weight: 52.3 kg

DRUGS (2)
  1. PACLITAXEL [Suspect]
     Dosage: 200 MG/M2 IV OVER 3 HR ON DAY 1, EVERY 21 DAYS X 6 CYCLES
     Dates: start: 20031107
  2. CARBOPLATIN [Suspect]
     Dosage: AUC = 6 IV OVER 15-3- MIN ON DAY 1, EVERY 21 DAYS X 6 CYCLES

REACTIONS (3)
  - CEREBRAL HAEMORRHAGE [None]
  - CEREBROVASCULAR ACCIDENT [None]
  - RESPIRATORY DISTRESS [None]
